FAERS Safety Report 16476150 (Version 1)
Quarter: 2019Q2

REPORT INFORMATION
  Report Type: Report from Study
  Country: None (occurrence: US)
  Receive Date: 20190625
  Receipt Date: 20190625
  Transmission Date: 20190711
  Serious: Yes (Hospitalization, Other)
  Sender: FDA-Public Use
  Company Number: US-ABBVIE-19K-163-2760952-00

PATIENT
  Age: 62 Year
  Sex: Female
  Weight: 85.35 kg

DRUGS (3)
  1. HUMIRA [Suspect]
     Active Substance: ADALIMUMAB
     Indication: PSORIASIS
  2. HUMIRA [Suspect]
     Active Substance: ADALIMUMAB
     Indication: PSORIASIS
  3. HUMIRA [Suspect]
     Active Substance: ADALIMUMAB
     Indication: PSORIATIC ARTHROPATHY
     Route: 058
     Dates: start: 2018

REACTIONS (17)
  - Weight bearing difficulty [Unknown]
  - Aspartate aminotransferase increased [Unknown]
  - Fall [Recovered/Resolved]
  - Dizziness [Unknown]
  - Anxiety [Unknown]
  - Psoriasis [Not Recovered/Not Resolved]
  - Loss of personal independence in daily activities [Unknown]
  - Blood alkaline phosphatase increased [Unknown]
  - Device issue [Unknown]
  - Drug ineffective [Unknown]
  - Ankle operation [Unknown]
  - Ankle fracture [Recovering/Resolving]
  - Dysphonia [Unknown]
  - Glomerular filtration rate decreased [Unknown]
  - Depression [Unknown]
  - Alanine aminotransferase increased [Unknown]
  - Pain in extremity [Unknown]

NARRATIVE: CASE EVENT DATE: 2019
